FAERS Safety Report 4847459-3 (Version None)
Quarter: 2005Q4

REPORT INFORMATION
  Report Type: 
  Country: None (occurrence: None)
  Receive Date: 20051205
  Receipt Date: 20051116
  Transmission Date: 20060501
  Serious: Yes (Hospitalization)
  Sender: FDA-Public Use
  Company Number: 2005AP000957

PATIENT
  Age: 12 Hour
  Sex: Female

DRUGS (2)
  1. PAROXETINE HCL [Suspect]
     Indication: DEPRESSION
     Dosage: 30 MG,TAB;TRPL;QD
     Route: 064
  2. CHLORPROMAZINE [Suspect]
     Indication: ANXIETY
     Dosage: 50 MG; BID
     Route: 064

REACTIONS (20)
  - BLOOD CREATINE PHOSPHOKINASE INCREASED [None]
  - CONVULSION NEONATAL [None]
  - DRUG EXPOSURE DURING PREGNANCY [None]
  - DRUG TOXICITY [None]
  - DRUG WITHDRAWAL SYNDROME NEONATAL [None]
  - FEEDING DISORDER NEONATAL [None]
  - FEELING JITTERY [None]
  - FEVER NEONATAL [None]
  - HYPERREFLEXIA [None]
  - HYPERTONIA [None]
  - INTERCOSTAL RETRACTION [None]
  - NEONATAL DISORDER [None]
  - NEONATAL RESPIRATORY DISTRESS SYNDROME [None]
  - OPISTHOTONUS [None]
  - POLYCYTHAEMIA [None]
  - POSTURE ABNORMAL [None]
  - PSYCHOMOTOR HYPERACTIVITY [None]
  - SEROTONIN SYNDROME [None]
  - TONIC CLONIC MOVEMENTS [None]
  - TREMOR NEONATAL [None]
